FAERS Safety Report 12705056 (Version 1)
Quarter: 2016Q3

REPORT INFORMATION
  Report Type: Report from Study
  Country: FR (occurrence: FR)
  Receive Date: 20160831
  Receipt Date: 20160831
  Transmission Date: 20161109
  Serious: Yes (Hospitalization, Other)
  Sender: FDA-Public Use
  Company Number: FR-ABBVIE-16P-056-1711960-00

PATIENT
  Age: 43 Year
  Sex: Male
  Weight: 78 kg

DRUGS (6)
  1. KREDEX [Concomitant]
     Active Substance: CARVEDILOL
     Indication: HYPERTENSION
  2. CORTANCYL [Concomitant]
     Active Substance: PREDNISONE
     Indication: CRYOGLOBULINAEMIA
     Dates: start: 1994
  3. AMLOR [Concomitant]
     Active Substance: AMLODIPINE BESYLATE
     Indication: HYPERTENSION
     Dates: start: 20151202
  4. VIEKIRAX [Suspect]
     Active Substance: OMBITASVIR\PARITAPREVIR\RITONAVIR
     Indication: HEPATITIS C
     Dosage: 12.5/75/50 MG X 2 DAILY
     Route: 048
     Dates: start: 20160106, end: 20160330
  5. MOPRAL [Concomitant]
     Active Substance: OMEPRAZOLE SODIUM
     Indication: GASTROOESOPHAGEAL REFLUX DISEASE
  6. EXVIERA [Suspect]
     Active Substance: DASABUVIR
     Indication: HEPATITIS C
     Route: 048
     Dates: start: 20160106, end: 20160330

REACTIONS (5)
  - Latent tuberculosis [Unknown]
  - Prostatitis [Recovering/Resolving]
  - Biopsy liver [Unknown]
  - Vitamin D deficiency [Unknown]
  - Haemangioma [Not Recovered/Not Resolved]

NARRATIVE: CASE EVENT DATE: 2016
